FAERS Safety Report 9910342 (Version 2)
Quarter: 2014Q1

REPORT INFORMATION
  Report Type: Spontaneous
  Country: JP (occurrence: JP)
  Receive Date: 20140219
  Receipt Date: 20140311
  Transmission Date: 20141002
  Serious: Yes (Hospitalization)
  Sender: FDA-Public Use
  Company Number: JP-PFIZER INC-2014042340

PATIENT
  Age: 32 Year
  Sex: Male

DRUGS (1)
  1. SOLU-MEDROL [Suspect]
     Indication: URTICARIA
     Dosage: UNK
     Route: 042

REACTIONS (1)
  - Thyrotoxic periodic paralysis [Unknown]
